FAERS Safety Report 7314545-8 (Version None)
Quarter: 2011Q1

REPORT INFORMATION
  Report Type: 
  Country: None (occurrence: None)
  Receive Date: 20110225
  Receipt Date: 20100927
  Transmission Date: 20110831
  Serious: No
  Sender: FDA-Public Use
  Company Number: US-MYLANLABS-2010S1017772

PATIENT
  Age: 19 Year
  Sex: Female
  Weight: 58.97 kg

DRUGS (3)
  1. AMNESTEEM [Suspect]
     Indication: ACNE
     Route: 048
     Dates: start: 20100625
  2. AMNESTEEM [Suspect]
     Dates: start: 20100625
  3. AMNESTEEM [Suspect]
     Route: 048
     Dates: start: 20100625

REACTIONS (2)
  - EPISTAXIS [None]
  - NASAL DRYNESS [None]
